FAERS Safety Report 9029583 (Version 2)
Quarter: 2013Q2

REPORT INFORMATION
  Report Type: Spontaneous
  Country: US (occurrence: US)
  Receive Date: 20130125
  Receipt Date: 20130502
  Transmission Date: 20140414
  Serious: No
  Sender: FDA-Public Use
  Company Number: US-009507513-1301USA011056

PATIENT
  Sex: Male

DRUGS (1)
  1. LISINOPRIL [Suspect]
     Dosage: UNK

REACTIONS (5)
  - Bradycardia [Unknown]
  - Accidental exposure to product [Unknown]
  - Overdose [Unknown]
  - Tachycardia [Unknown]
  - Hypotension [Unknown]
